FAERS Safety Report 21821514 (Version 2)
Quarter: 2023Q1

REPORT INFORMATION
  Report Type: Spontaneous
  Country: JP (occurrence: JP)
  Receive Date: 20230105
  Receipt Date: 20230318
  Transmission Date: 20230417
  Serious: Yes (Death, Other)
  Sender: FDA-Public Use
  Company Number: JP-AMGEN-JPNSP2022226027

PATIENT
  Sex: Male

DRUGS (14)
  1. REPATHA [Suspect]
     Active Substance: EVOLOCUMAB
     Indication: Hypercholesterolaemia
     Dosage: 420 MILLIGRAM, Q4WK
     Route: 058
     Dates: start: 20220412, end: 20221220
  2. EDOXABAN TOSYLATE [Concomitant]
     Active Substance: EDOXABAN TOSYLATE
     Dosage: 30 MILLIGRAM, QD
  3. VONOPRAZAN FUMARATE [Concomitant]
     Active Substance: VONOPRAZAN FUMARATE
     Dosage: 10 MILLIGRAM, QD
  4. ENALAPRIL MALEATE [Concomitant]
     Active Substance: ENALAPRIL MALEATE
     Dosage: 0.25 MILLIGRAM, QD
  5. TORSEMIDE [Concomitant]
     Active Substance: TORSEMIDE
     Dosage: 8 MILLIGRAM, BID
  6. EMPAGLIFLOZIN\LINAGLIPTIN [Concomitant]
     Active Substance: EMPAGLIFLOZIN\LINAGLIPTIN
     Dosage: UNK UNK, QD
  7. ATORVASTATIN CALCIUM\EZETIMIBE [Concomitant]
     Active Substance: ATORVASTATIN CALCIUM\EZETIMIBE
     Dosage: UNK UNK, QD
  8. CARVEDILOL [Concomitant]
     Active Substance: CARVEDILOL
     Dosage: 5 MILLIGRAM, QD
  9. BROTIZOLAM [Concomitant]
     Active Substance: BROTIZOLAM
     Dosage: 0.25 MILLIGRAM, QD
  10. MAGNESIUM OXIDE [Concomitant]
     Active Substance: MAGNESIUM OXIDE
     Dosage: 660 MILLIGRAM, QD
  11. SPIRIVA [Concomitant]
     Active Substance: TIOTROPIUM BROMIDE MONOHYDRATE
     Dosage: 5 MICROGRAM, BID
  12. Depas [Concomitant]
     Dosage: UNK UNK, QD
  13. LASIX [Concomitant]
     Active Substance: FUROSEMIDE
     Dosage: UNK UNK, QD
  14. PIMOBENDAN [Concomitant]
     Active Substance: PIMOBENDAN
     Dosage: 2.5 MILLIGRAM, QD

REACTIONS (1)
  - Cardiac failure [Fatal]

NARRATIVE: CASE EVENT DATE: 20221224
